FAERS Safety Report 5100063-4 (Version None)
Quarter: 2006Q3

REPORT INFORMATION
  Report Type: 
  Country: None (occurrence: None)
  Receive Date: 20060908
  Receipt Date: 20060417
  Transmission Date: 20061208
  Serious: Yes (Disabling, Other)
  Sender: FDA-Public Use
  Company Number: 2006UW06878

PATIENT
  Age: 78 Year
  Sex: Female
  Weight: 68 kg

DRUGS (3)
  1. NEXIUM [Suspect]
     Indication: PAIN
     Route: 048
     Dates: start: 20030601, end: 20040701
  2. NEXIUM [Suspect]
     Indication: EROSIVE OESOPHAGITIS
     Route: 048
     Dates: start: 20030601, end: 20040701
  3. NEXIUM [Suspect]
     Indication: GASTRITIS EROSIVE
     Route: 048
     Dates: start: 20030601, end: 20040701

REACTIONS (10)
  - ANGER [None]
  - CONDITION AGGRAVATED [None]
  - CRYING [None]
  - DRUG INEFFECTIVE [None]
  - GAIT DISTURBANCE [None]
  - HEADACHE [None]
  - HEPATIC INFECTION [None]
  - LIVER DISORDER [None]
  - OSTEOARTHRITIS [None]
  - RHEUMATOID ARTHRITIS [None]
